FAERS Safety Report 5736948-5 (Version None)
Quarter: 2008Q2

REPORT INFORMATION
  Report Type: 
  Country: None (occurrence: None)
  Receive Date: 20080509
  Receipt Date: 20080428
  Transmission Date: 20081010
  Serious: Yes (Other)
  Sender: FDA-Public Use
  Company Number: 2008AL003459

PATIENT
  Sex: Female

DRUGS (5)
  1. RANITIDINE [Suspect]
     Indication: GASTROOESOPHAGEAL REFLUX DISEASE
     Dosage: 11 MG; BID; PO
     Route: 048
     Dates: start: 20060120, end: 20060425
  2. DOMPERIDONE [Concomitant]
  3. ACETAMINOPHEN [Concomitant]
  4. GAVISCON [Concomitant]
  5. M HYDROXIDE GEL [Concomitant]

REACTIONS (1)
  - LIVER FUNCTION TEST ABNORMAL [None]
